FAERS Safety Report 6896842-3 (Version None)
Quarter: 2010Q3

REPORT INFORMATION
  Report Type: 
  Country: None (occurrence: None)
  Receive Date: 20100802
  Receipt Date: 20070119
  Transmission Date: 20110219
  Serious: No
  Sender: FDA-Public Use
  Company Number: US-PFIZER INC-2007021193

PATIENT
  Sex: Female

DRUGS (5)
  1. LYRICA [Interacting]
     Indication: TRIGEMINAL NEURALGIA
  2. SUDAFED 12 HOUR [Interacting]
  3. ATIVAN [Interacting]
  4. NORDETTE-21 [Suspect]
  5. TRILEPTAL [Concomitant]

REACTIONS (4)
  - AMENORRHOEA [None]
  - DRUG INTERACTION [None]
  - FATIGUE [None]
  - SOMNOLENCE [None]
